FAERS Safety Report 21111054 (Version 1)
Quarter: 2022Q3

REPORT INFORMATION
  Report Type: Spontaneous
  Country: US (occurrence: None)
  Receive Date: 20220720
  Receipt Date: 20220720
  Transmission Date: 20221027
  Serious: Yes (Death)
  Sender: FDA-Public Use
  Company Number: None

PATIENT
  Age: 75 Year
  Sex: Male

DRUGS (11)
  1. ABIRATERONE [Suspect]
     Active Substance: ABIRATERONE
     Indication: Prostate cancer
     Dosage: 1000MG DAILY ORAL?
     Route: 048
     Dates: start: 20210901, end: 20220713
  2. ACETAMINOPHEN [Concomitant]
     Active Substance: ACETAMINOPHEN
     Dates: start: 20220710, end: 20220713
  3. ASPIRIN [Concomitant]
     Active Substance: ASPIRIN
     Dates: start: 20201101, end: 20220713
  4. ATORVASTATIN [Concomitant]
     Active Substance: ATORVASTATIN
     Dates: start: 20200818, end: 20220713
  5. DOCUSATE SODIUM [Concomitant]
     Active Substance: DOCUSATE SODIUM
     Dates: start: 20220710, end: 20220713
  6. LISINOPRIL [Concomitant]
     Active Substance: LISINOPRIL
     Dates: start: 20200818, end: 20220713
  7. OXYCODONE [Concomitant]
     Active Substance: OXYCODONE
     Dates: start: 20210507, end: 20220713
  8. PREDNISONE [Concomitant]
     Active Substance: PREDNISONE
     Dates: start: 20200825, end: 20220713
  9. TAMSULOSIN [Concomitant]
     Active Substance: TAMSULOSIN
     Dates: start: 20220710, end: 20220713
  10. COENZYME Q10 [Concomitant]
     Active Substance: DIETARY SUPPLEMENT\UBIDECARENONE
     Dates: start: 20210901, end: 20220713
  11. VITAMIN D [Concomitant]
     Active Substance: VITAMIN D NOS
     Dates: start: 20210901, end: 20220713

REACTIONS (1)
  - Death [None]

NARRATIVE: CASE EVENT DATE: 20220713
